FAERS Safety Report 11326294 (Version 1)
Quarter: 2015Q3

REPORT INFORMATION
  Report Type: Spontaneous
  Country: US (occurrence: None)
  Receive Date: 20150629
  Receipt Date: 20150629
  Transmission Date: 20151125
  Serious: No
  Sender: FDA-Public Use
  Company Number: A-NJ2014-108591

PATIENT
  Age: 52 Year
  Sex: Female

DRUGS (3)
  1. OPSUMIT [Suspect]
     Active Substance: MACITENTAN
     Indication: PULMONARY ARTERIAL HYPERTENSION
     Route: 048
     Dates: start: 20140918
  2. COUMADIN [Concomitant]
     Active Substance: WARFARIN SODIUM
  3. PREVACID [Concomitant]
     Active Substance: LANSOPRAZOLE

REACTIONS (1)
  - Myalgia [None]

NARRATIVE: CASE EVENT DATE: 20141101
